FAERS Safety Report 6914837-8 (Version None)
Quarter: 2010Q3

REPORT INFORMATION
  Report Type: 
  Country: None (occurrence: None)
  Receive Date: 20100809
  Receipt Date: 20100806
  Transmission Date: 20110219
  Serious: Yes (Other)
  Sender: FDA-Public Use
  Company Number: FR-PURDUE-GBR-2010-0006708

PATIENT
  Age: 89 Year
  Sex: Female

DRUGS (3)
  1. OXYCONTIN [Suspect]
     Indication: PAIN
     Dosage: 20 MG, BID
     Route: 048
     Dates: start: 20100323, end: 20100412
  2. OXYCONTIN [Suspect]
     Dosage: 10 MG, BID
     Route: 048
     Dates: start: 20100413, end: 20100421
  3. OXYCONTIN [Suspect]
     Dosage: 5 MG, BID
     Route: 048
     Dates: start: 20100422, end: 20100426

REACTIONS (4)
  - AUTONOMIC NERVOUS SYSTEM IMBALANCE [None]
  - CONFUSIONAL STATE [None]
  - FAECAL INCONTINENCE [None]
  - URINARY INCONTINENCE [None]
